FAERS Safety Report 8527522 (Version 3)
Quarter: 2012Q4

REPORT INFORMATION
  Report Type: 
  Country: MX (occurrence: MX)
  Receive Date: 20120424
  Receipt Date: 20121011
  Transmission Date: 20130627
  Serious: Yes (Death, Life-Threatening, Hospitalization, Other)
  Sender: FDA-Public Use
  Company Number: MX-SANOFI-AVENTIS-2012SA016850

PATIENT
  Age: 50 Year
  Sex: Female

DRUGS (15)
  1. TAXOTERE [Suspect]
     Indication: BREAST CANCER STAGE III
     Route: 042
     Dates: start: 20111213, end: 20111213
  2. TAXOTERE [Suspect]
     Indication: BREAST CANCER STAGE III
     Route: 042
     Dates: start: 20120214, end: 20120214
  3. TAXOTERE [Suspect]
     Indication: BREAST CANCER STAGE III
     Route: 042
     Dates: start: 20120124, end: 20120124
  4. TAXOTERE [Suspect]
     Indication: BREAST CANCER STAGE III
     Route: 042
     Dates: start: 20120113, end: 20120113
  5. TRASTUZUMAB [Concomitant]
     Indication: BREAST CARCINOMA STAGE III
     Route: 042
     Dates: start: 20111213, end: 20111213
  6. TRASTUZUMAB [Concomitant]
     Indication: BREAST CARCINOMA STAGE III
     Route: 042
     Dates: start: 20120113, end: 20120113
  7. TRASTUZUMAB [Concomitant]
     Indication: BREAST CARCINOMA STAGE III
     Route: 042
     Dates: start: 20120124, end: 20120124
  8. TRASTUZUMAB [Concomitant]
     Indication: BREAST CARCINOMA STAGE III
     Route: 042
     Dates: start: 20120214, end: 20120214
  9. DEXAMETHASONE [Concomitant]
     Indication: PREMEDICATION
  10. DIPHENHYDRAMINE [Concomitant]
     Indication: PREMEDICATION
  11. RANITIDINE [Concomitant]
     Indication: PREMEDICATION
  12. GRANISETRON [Concomitant]
     Indication: PREMEDICATION
  13. CYCLOPHOSPHAMIDE [Concomitant]
     Indication: BREAST CANCER
     Route: 042
  14. EPIRUBICIN [Concomitant]
     Indication: BREAST CANCER
     Route: 042
  15. ADRIAMYCIN [Concomitant]
     Indication: BREAST CANCER
     Route: 042

REACTIONS (7)
  - Death [Fatal]
  - Pneumonitis [Recovering/Resolving]
  - Dyspnoea [Recovering/Resolving]
  - Orthopnoea [Recovering/Resolving]
  - Productive cough [Recovering/Resolving]
  - Pulmonary function test abnormal [Unknown]
  - Lung infiltration [Unknown]
